FAERS Safety Report 5505593-9 (Version None)
Quarter: 2007Q4

REPORT INFORMATION
  Report Type: 
  Country: None (occurrence: None)
  Receive Date: 20071102
  Receipt Date: 20071024
  Transmission Date: 20080405
  Serious: Yes (Hospitalization, Other)
  Sender: FDA-Public Use
  Company Number: US-PFIZER INC-2006150490

PATIENT
  Sex: Female
  Weight: 63.5 kg

DRUGS (10)
  1. CELEBREX [Suspect]
     Indication: ARTHRITIS
  2. CELEBREX [Suspect]
     Indication: PAIN
  3. BEXTRA [Suspect]
     Indication: ARTHRITIS
     Dates: start: 20030101
  4. BEXTRA [Suspect]
     Indication: PAIN
  5. VIOXX [Suspect]
     Indication: PAIN
     Route: 048
  6. DIAZEPAM [Concomitant]
     Indication: PAIN
     Dates: start: 20020103, end: 20041031
  7. IBUPROFEN [Concomitant]
     Indication: PAIN
     Dates: start: 20020103, end: 20040616
  8. ACETAMINOPHEN [Concomitant]
     Indication: PAIN
     Dates: start: 20020909, end: 20030801
  9. CYCLOBENZAPRINE HCL [Concomitant]
     Indication: PAIN
     Dates: start: 20020520, end: 20040214
  10. ZESTRIL [Concomitant]
     Indication: HYPERTENSION
     Dates: start: 20020114, end: 20030314

REACTIONS (3)
  - CEREBROVASCULAR ACCIDENT [None]
  - MYOCARDIAL INFARCTION [None]
  - TRANSIENT ISCHAEMIC ATTACK [None]
